FAERS Safety Report 14880410 (Version 2)
Quarter: 2018Q2

REPORT INFORMATION
  Report Type: Spontaneous
  Country: GB (occurrence: GB)
  Receive Date: 20180511
  Receipt Date: 20180522
  Transmission Date: 20180711
  Serious: Yes (Other)
  Sender: FDA-Public Use
  Company Number: GB-DRREDDYS-GER/UKI/18/0098793

PATIENT
  Age: 34 Year
  Sex: Male
  Weight: 91 kg

DRUGS (8)
  1. CETIRIZINE [Suspect]
     Active Substance: CETIRIZINE HYDROCHLORIDE
     Dosage: UNK
     Route: 048
     Dates: start: 2017, end: 20171020
  2. CETIRIZINE [Suspect]
     Active Substance: CETIRIZINE HYDROCHLORIDE
     Dosage: 10 MG, ONCE DAILY (QD)
     Route: 048
     Dates: start: 20160501, end: 2017
  3. CETIRIZINE [Suspect]
     Active Substance: CETIRIZINE HYDROCHLORIDE
     Indication: SEASONAL ALLERGY
     Dosage: 1 DF ONCE DAILY (QD)
     Route: 048
     Dates: start: 2017, end: 2017
  4. CETIRIZINE [Suspect]
     Active Substance: CETIRIZINE HYDROCHLORIDE
     Indication: SEASONAL ALLERGY
     Dosage: UNK
     Route: 048
     Dates: start: 20160501, end: 20171020
  5. CETIRIZINE [Suspect]
     Active Substance: CETIRIZINE HYDROCHLORIDE
     Dosage: UNK UNK, ONCE DAILY (QD)
     Route: 048
     Dates: start: 20160501, end: 20171020
  6. CETIRIZINE [Suspect]
     Active Substance: CETIRIZINE HYDROCHLORIDE
     Dosage: 10 MG, ONCE DAILY (QD)
     Route: 048
     Dates: start: 20160501, end: 2016
  7. LORATADINE. [Concomitant]
     Active Substance: LORATADINE
     Indication: PRURITUS GENERALISED
     Dosage: UNK
     Dates: start: 20160501, end: 20171020
  8. LORATADINE. [Concomitant]
     Active Substance: LORATADINE
     Indication: PRURITUS GENERALISED
     Dosage: UNK
     Dates: start: 2016

REACTIONS (2)
  - Withdrawal syndrome [Unknown]
  - Pruritus generalised [Not Recovered/Not Resolved]

NARRATIVE: CASE EVENT DATE: 20160901
